FAERS Safety Report 12011420 (Version 1)
Quarter: 2016Q1

REPORT INFORMATION
  Report Type: Report from Study
  Country: ES (occurrence: ES)
  Receive Date: 20160205
  Receipt Date: 20160205
  Transmission Date: 20160526
  Serious: Yes (Other)
  Sender: FDA-Public Use
  Company Number: ES-BRISTOL-MYERS SQUIBB COMPANY-17094269

PATIENT
  Age: 48 Year
  Sex: Male

DRUGS (1)
  1. ARIPIPRAZOLE. [Suspect]
     Active Substance: ARIPIPRAZOLE
     Indication: PRODUCT USED FOR UNKNOWN INDICATION
     Dosage: 30 MG, UNK
     Route: 048

REACTIONS (12)
  - Drug ineffective [Unknown]
  - Decreased interest [Unknown]
  - Flat affect [Unknown]
  - Abnormal behaviour [Unknown]
  - Social avoidant behaviour [Unknown]
  - Disorganised speech [Unknown]
  - Disturbance in attention [Unknown]
  - Off label use [Unknown]
  - Irritability [Unknown]
  - Anosognosia [Unknown]
  - Thinking abnormal [Unknown]
  - Hallucination [Unknown]
